FAERS Safety Report 10215902 (Version 3)
Quarter: 2014Q3

REPORT INFORMATION
  Report Type: Spontaneous
  Country: FR (occurrence: FR)
  Receive Date: 20140604
  Receipt Date: 20140806
  Transmission Date: 20150326
  Serious: Yes (Hospitalization, Other)
  Sender: FDA-Public Use
  Company Number: FR-AMGEN-FRASP2014040135

PATIENT
  Age: 88 Year
  Sex: Female
  Weight: 50 kg

DRUGS (14)
  1. CALCIDOSE VITAMINE D [Concomitant]
     Active Substance: CALCIUM\CHOLECALCIFEROL
     Dosage: 500 UNK, BID
  2. OXYGEN. [Concomitant]
     Active Substance: OXYGEN
     Indication: CHRONIC OBSTRUCTIVE PULMONARY DISEASE
     Dosage: 1 ILMIN, 18 HLDAY
  3. LOCOID [Concomitant]
     Active Substance: HYDROCORTISONE BUTYRATE
  4. ALDACTONE [Concomitant]
     Active Substance: SPIRONOLACTONE
     Dosage: UNK UNK, BID
  5. PREVISCAN                          /00261401/ [Concomitant]
     Active Substance: PENTOXIFYLLINE
     Indication: ATRIAL FIBRILLATION
     Dosage: UNK UNK, QD
  6. PROLIA [Suspect]
     Active Substance: DENOSUMAB
     Indication: OSTEOPOROSIS POSTMENOPAUSAL
     Dosage: 60 MG, Q6MO
     Route: 058
     Dates: start: 20140403, end: 201404
  7. TARDYFERON [Concomitant]
     Active Substance: FERROUS SULFATE\FOLIC ACID
     Dosage: 80 MG, QD
  8. FRESUBIN                           /07459901/ [Concomitant]
     Indication: PROTEIN DEFICIENCY
     Dosage: UNK UNK, QD
  9. MACROGOL [Concomitant]
     Active Substance: POLYETHYLENE GLYCOLS
  10. SERETIDE [Concomitant]
     Active Substance: FLUTICASONE FUROATE\SALMETEROL XINAFOATE
     Indication: CHRONIC OBSTRUCTIVE PULMONARY DISEASE
     Dosage: 250 MUG, BID
  11. FUROSEMIDE. [Concomitant]
     Active Substance: FUROSEMIDE
     Indication: CARDIAC FAILURE
     Dosage: 80 MG, QD
  12. VALSARTAN. [Concomitant]
     Active Substance: VALSARTAN
     Dosage: 40 MG, QD
  13. DIFFU-K [Concomitant]
     Active Substance: POTASSIUM CHLORIDE
     Indication: DIURETIC THERAPY
     Dosage: UNK UNK, TID
  14. DEXERYL                            /00557601/ [Concomitant]
     Active Substance: GLYCERIN\PARAFFIN

REACTIONS (6)
  - Atrial fibrillation [Unknown]
  - Lung disorder [Unknown]
  - Ischaemic stroke [Not Recovered/Not Resolved]
  - Renal failure acute [Unknown]
  - Cardiac failure [Unknown]
  - Crystal arthropathy [Unknown]

NARRATIVE: CASE EVENT DATE: 201404
